FAERS Safety Report 7219702-7 (Version None)
Quarter: 2011Q1

REPORT INFORMATION
  Report Type: 
  Country: None (occurrence: None)
  Receive Date: 20110111
  Receipt Date: 20110104
  Transmission Date: 20110831
  Serious: Yes (Hospitalization)
  Sender: FDA-Public Use
  Company Number: PHHO2009ES01354

PATIENT
  Sex: Female
  Weight: 58 kg

DRUGS (4)
  1. CGS 20267 [Suspect]
     Indication: BREAST CANCER
     Dosage: 2.5 MG, QD
     Route: 048
     Dates: start: 20050518, end: 20081222
  2. ZOLEDRONIC ACID [Suspect]
     Dosage: 4 MG, UNK
     Route: 042
     Dates: start: 20050520
  3. VITAMIN D [Concomitant]
  4. CALCIUM [Concomitant]

REACTIONS (7)
  - CARDIOMYOPATHY [None]
  - ORTHOPNOEA [None]
  - DYSPNOEA [None]
  - TOXICITY TO VARIOUS AGENTS [None]
  - COUGH [None]
  - PLEURAL EFFUSION [None]
  - CARDIOMEGALY [None]
